FAERS Safety Report 18186590 (Version 1)
Quarter: 2020Q3

REPORT INFORMATION
  Report Type: Spontaneous
  Country: US (occurrence: US)
  Receive Date: 20200824
  Receipt Date: 20200824
  Transmission Date: 20201103
  Serious: No
  Sender: FDA-Public Use
  Company Number: US-CELLTRION INC.-2020US021788

PATIENT

DRUGS (1)
  1. INFLECTRA [Suspect]
     Active Substance: INFLIXIMAB-DYYB
     Indication: CROHN^S DISEASE
     Dosage: UNK (ONE EVERY SIX WEEKS)
     Route: 042
     Dates: start: 202002

REACTIONS (5)
  - Product dose omission issue [Not Recovered/Not Resolved]
  - Body height decreased [Unknown]
  - Back disorder [Unknown]
  - Product use issue [Unknown]
  - Off label use [Unknown]
